FAERS Safety Report 12253794 (Version 2)
Quarter: 2016Q2

REPORT INFORMATION
  Report Type: Report from Study
  Country: US (occurrence: US)
  Receive Date: 20160411
  Receipt Date: 20160419
  Transmission Date: 20160815
  Serious: Yes (Other)
  Sender: FDA-Public Use
  Company Number: US-BAYER-2016-043909

PATIENT
  Age: 58 Year
  Sex: Male

DRUGS (1)
  1. STIVARGA [Suspect]
     Active Substance: REGORAFENIB
     Indication: COLORECTAL CANCER
     Dosage: 120 MG, QD
     Route: 048
     Dates: start: 20160227

REACTIONS (7)
  - Dysphonia [None]
  - Neuralgia [None]
  - Pyrexia [Recovering/Resolving]
  - Abasia [None]
  - Headache [None]
  - Blood pressure increased [None]
  - Hypoaesthesia [None]

NARRATIVE: CASE EVENT DATE: 2016
